FAERS Safety Report 9413828 (Version 2)
Quarter: 2013Q3

REPORT INFORMATION
  Report Type: Spontaneous
  Country: US (occurrence: US)
  Receive Date: 20130723
  Receipt Date: 20130801
  Transmission Date: 20140515
  Serious: Yes (Congenital Anomaly, Other)
  Sender: FDA-Public Use
  Company Number: US-PFIZER INC-2013212831

PATIENT
  Sex: Male

DRUGS (5)
  1. ZOLOFT [Suspect]
     Dosage: UNK
     Route: 064
     Dates: start: 200208
  2. ZOLOFT [Suspect]
     Dosage: UNK
     Route: 064
     Dates: start: 200501, end: 200603
  3. HYDROCHLOROTHIAZIDE [Concomitant]
     Dosage: UNK
     Route: 064
  4. TYLENOL [Concomitant]
     Dosage: UNK
     Route: 064
  5. PRENATAL VITAMINS [Concomitant]
     Dosage: UNK
     Route: 064

REACTIONS (3)
  - Maternal exposure during pregnancy [Unknown]
  - Fallot^s tetralogy [Unknown]
  - Ventricular septal defect [Unknown]
